FAERS Safety Report 15982884 (Version 1)
Quarter: 2019Q1

REPORT INFORMATION
  Report Type: Spontaneous
  Country: US (occurrence: US)
  Receive Date: 20190219
  Receipt Date: 20190219
  Transmission Date: 20190418
  Serious: Yes (Other)
  Sender: FDA-Public Use
  Company Number: US-SHIRE-US201905345

PATIENT
  Sex: Female

DRUGS (1)
  1. VPRIV [Suspect]
     Active Substance: VELAGLUCERASE ALFA
     Indication: GAUCHER^S DISEASE TYPE I
     Dosage: UNK UNK, 1X/2WKS
     Route: 042
     Dates: start: 20100415

REACTIONS (1)
  - Cataract [Recovering/Resolving]
